FAERS Safety Report 25301811 (Version 1)
Quarter: 2025Q2

REPORT INFORMATION
  Report Type: Spontaneous
  Country: US (occurrence: None)
  Receive Date: 20250512
  Receipt Date: 20250512
  Transmission Date: 20250716
  Serious: Yes (Other)
  Sender: FDA-CTU
  Company Number: None

PATIENT
  Age: 30 Year
  Sex: Female

DRUGS (1)
  1. CEPHALEXIN [Suspect]
     Active Substance: CEPHALEXIN
     Indication: Urinary tract infection
     Dates: start: 20250510, end: 20250510

REACTIONS (5)
  - Delirium [None]
  - Anxiety [None]
  - Panic attack [None]
  - Insomnia [None]
  - Malaise [None]

NARRATIVE: CASE EVENT DATE: 20250510
